FAERS Safety Report 5056976-5 (Version None)
Quarter: 2006Q2

REPORT INFORMATION
  Report Type: 
  Country: None (occurrence: None)
  Receive Date: 20060622
  Receipt Date: 20050825
  Transmission Date: 20061013
  Serious: Yes (Death)
  Sender: FDA-Public Use
  Company Number: US-JNJFOC-20050806260

PATIENT
  Age: 40 Year
  Sex: Female

DRUGS (2)
  1. DURAGESIC-100 [Suspect]
     Indication: INTENTIONAL DRUG MISUSE
     Dosage: 200 UG/HR, TRANSDERMAL
     Route: 062
     Dates: end: 20050617
  2. SEIZURE MEDICATION (ANTIEPILEPTICS) [Concomitant]

REACTIONS (1)
  - DRUG ABUSER [None]
